FAERS Safety Report 8682959 (Version 2)
Quarter: 2012Q4

REPORT INFORMATION
  Report Type: Report from Study
  Country: GB (occurrence: GB)
  Receive Date: 20120725
  Receipt Date: 20120830
  Transmission Date: 20130627
  Serious: Yes (Death)
  Sender: FDA-Public Use
  Company Number: GB-ROCHE-1090387

PATIENT
  Age: 74 Year
  Sex: Female

DRUGS (9)
  1. BONVIVA [Suspect]
     Indication: BREAST CANCER METASTATIC
     Dosage: Discontinued on 28/Dec/2011 due to SAE.
     Route: 048
     Dates: start: 20100904, end: 20111228
  2. LETROZOLE [Concomitant]
     Route: 048
  3. OMEPRAZOLE [Concomitant]
     Route: 048
  4. BISOPROLOL [Concomitant]
     Route: 048
  5. AMLODIPINE [Concomitant]
     Route: 048
  6. CYCLIZINE [Concomitant]
     Route: 048
  7. PARACETAMOL [Concomitant]
     Route: 048
  8. DALTEPARIN [Concomitant]
     Route: 048
  9. CALCICHEW D3 [Concomitant]
     Route: 048

REACTIONS (1)
  - Thrombotic thrombocytopenic purpura [Fatal]
